FAERS Safety Report 4686470-2 (Version None)
Quarter: 2005Q2

REPORT INFORMATION
  Report Type: 
  Country: None (occurrence: None)
  Receive Date: 20050606
  Receipt Date: 20050524
  Transmission Date: 20051028
  Serious: Yes (Other)
  Sender: FDA-Public Use
  Company Number: 2005079698

PATIENT
  Age: 45 Year
  Sex: Female
  Weight: 104.3273 kg

DRUGS (3)
  1. BEXTRA [Suspect]
     Indication: ARTHRITIS
     Dosage: ORAL
     Route: 048
     Dates: start: 20040101
  2. CELEBREX [Suspect]
     Indication: ARTHRITIS
     Dosage: 400 MG (200 MG, 2 IN 1 D), ORAL
     Route: 048
     Dates: start: 20040401, end: 20050401
  3. ANDROGEL [Suspect]
     Indication: HORMONE REPLACEMENT THERAPY
     Dosage: (10  GRAM, DAILY), TOPICAL
     Route: 061
     Dates: start: 20040401, end: 20050501

REACTIONS (3)
  - FATIGUE [None]
  - LEUKOCYTOCLASTIC VASCULITIS [None]
  - THERAPY NON-RESPONDER [None]
